FAERS Safety Report 14205077 (Version 3)
Quarter: 2018Q2

REPORT INFORMATION
  Report Type: Report from Study
  Country: CA (occurrence: CA)
  Receive Date: 20171120
  Receipt Date: 20180405
  Transmission Date: 20180711
  Serious: Yes (Other)
  Sender: FDA-Public Use
  Company Number: CA-JNJFOC-20171116148

PATIENT
  Age: 60 Year
  Sex: Female

DRUGS (11)
  1. REMICADE [Suspect]
     Active Substance: INFLIXIMAB
     Indication: ANKYLOSING SPONDYLITIS
     Route: 042
     Dates: start: 20180220
  2. ASACOL [Concomitant]
     Active Substance: MESALAMINE
     Route: 065
  3. DICETEL [Concomitant]
     Active Substance: PINAVERIUM BROMIDE
     Route: 065
  4. REMICADE [Suspect]
     Active Substance: INFLIXIMAB
     Indication: ANKYLOSING SPONDYLITIS
     Route: 042
     Dates: start: 20090422
  5. CALCIUM [Concomitant]
     Active Substance: CALCIUM
     Route: 065
  6. REMICADE [Suspect]
     Active Substance: INFLIXIMAB
     Indication: ANKYLOSING SPONDYLITIS
     Route: 042
     Dates: start: 20180206
  7. VITAMIN D [Concomitant]
     Active Substance: CHOLECALCIFEROL
     Route: 065
  8. DIPROLENE [Concomitant]
     Active Substance: BETAMETHASONE DIPROPIONATE
     Route: 065
  9. BUSCOPAN [Concomitant]
     Active Substance: BUTYLSCOPOLAMINE BROMIDE
     Route: 065
  10. ROCALTROL [Concomitant]
     Active Substance: CALCITRIOL
     Route: 065
  11. MELATONIN [Concomitant]
     Active Substance: MELATONIN
     Route: 065

REACTIONS (11)
  - Pain [Unknown]
  - Weight fluctuation [Unknown]
  - Palpitations [Unknown]
  - Basal cell carcinoma [Unknown]
  - Back pain [Unknown]
  - Drug specific antibody present [Unknown]
  - Off label use [Unknown]
  - Increased appetite [Unknown]
  - Insomnia [Unknown]
  - Fatigue [Not Recovered/Not Resolved]
  - Incorrect dose administered [Unknown]

NARRATIVE: CASE EVENT DATE: 2009
